FAERS Safety Report 15340529 (Version 2)
Quarter: 2018Q3

REPORT INFORMATION
  Report Type: Spontaneous
  Country: US (occurrence: US)
  Receive Date: 20180831
  Receipt Date: 20180921
  Transmission Date: 20181010
  Serious: No
  Sender: FDA-Public Use
  Company Number: US-PFIZER INC-2018340125

PATIENT
  Age: 76 Year
  Sex: Female
  Weight: 56 kg

DRUGS (8)
  1. ALENDRONATE [Concomitant]
     Active Substance: ALENDRONATE SODIUM
     Indication: BONE DISORDER
     Dosage: UNK UNK, WEEKLY
  2. POTASSIUM [Concomitant]
     Active Substance: POTASSIUM
     Indication: ELECTROLYTE IMBALANCE
     Dosage: 1 ML, 1X/DAY
  3. POTASSIUM [Concomitant]
     Active Substance: POTASSIUM
     Indication: DIZZINESS
  4. METOPROLOL TARTRATE. [Suspect]
     Active Substance: METOPROLOL TARTRATE
     Indication: HYPERTENSION
     Dosage: 25 MG, 2X/DAY
     Route: 048
  5. COENZYME Q10 [Concomitant]
     Active Substance: UBIDECARENONE
     Dosage: 100 MG, ALTERNATE DAY
  6. LIQUID E [Concomitant]
     Dosage: 1000 MG, DAILY
  7. AMLODIPINE BESILATE [Suspect]
     Active Substance: AMLODIPINE BESYLATE
     Indication: HYPERTENSION
     Dosage: 5 MG, 1X/DAY
     Route: 048
     Dates: start: 20180629
  8. BABY ASPIRIN [Concomitant]
     Active Substance: ASPIRIN
     Dosage: 81 MG, 1X/DAY

REACTIONS (7)
  - Drug ineffective [Unknown]
  - Somnolence [Unknown]
  - Vision blurred [Not Recovered/Not Resolved]
  - Insomnia [Unknown]
  - Condition aggravated [Not Recovered/Not Resolved]
  - Dizziness [Unknown]
  - Oedema [Not Recovered/Not Resolved]
